FAERS Safety Report 4756239-9 (Version None)
Quarter: 2005Q3

REPORT INFORMATION
  Report Type: 
  Country: None (occurrence: None)
  Receive Date: 20050830
  Receipt Date: 20050511
  Transmission Date: 20060218
  Serious: No
  Sender: FDA-Public Use
  Company Number: US-GLAXOSMITHKLINE-A0558167A

PATIENT
  Age: 42 Year
  Sex: Female

DRUGS (5)
  1. WELLBUTRIN XL [Suspect]
     Indication: DEPRESSION
     Dosage: 150MG PER DAY
     Route: 048
     Dates: start: 20050201, end: 20050401
  2. EFFEXOR XR [Suspect]
     Dosage: 37.5MG PER DAY
     Route: 048
     Dates: end: 20050201
  3. LEXAPRO [Suspect]
     Route: 048
     Dates: start: 20050401
  4. CELEBREX [Concomitant]
  5. NEURONTIN [Concomitant]

REACTIONS (2)
  - AGITATION [None]
  - INSOMNIA [None]
